FAERS Safety Report 23952664 (Version 2)
Quarter: 2024Q3

REPORT INFORMATION
  Report Type: Spontaneous
  Country: US (occurrence: US)
  Receive Date: 20240607
  Receipt Date: 20240912
  Transmission Date: 20241016
  Serious: No
  Sender: CALLIDITAS THERAPEUTICS
  Company Number: US-Calliditas-2024CAL00897

PATIENT
  Age: 33 Year
  Sex: Male
  Weight: 80.7 kg

DRUGS (1)
  1. TARPEYO [Suspect]
     Active Substance: BUDESONIDE
     Indication: IgA nephropathy
     Route: 048
     Dates: start: 20240410

REACTIONS (7)
  - Inappropriate schedule of product administration [Unknown]
  - Brain fog [Not Recovered/Not Resolved]
  - Product dose omission issue [Unknown]
  - Gout [Unknown]
  - Anger [Unknown]
  - Libido decreased [Unknown]
  - Prescribed underdose [Unknown]
